FAERS Safety Report 6953733-7 (Version None)
Quarter: 2010Q3

REPORT INFORMATION
  Report Type: 
  Country: None (occurrence: None)
  Receive Date: 20100829
  Receipt Date: 20100617
  Transmission Date: 20110219
  Serious: No
  Sender: FDA-Public Use
  Company Number: US-ABBOTT-10P-163-0653142-00

PATIENT
  Sex: Female
  Weight: 75.818 kg

DRUGS (5)
  1. NIASPAN [Suspect]
     Indication: C-REACTIVE PROTEIN INCREASED
     Route: 048
     Dates: start: 20090101
  2. NIASPAN [Suspect]
     Route: 048
  3. NIASPAN [Suspect]
     Route: 048
     Dates: end: 20100618
  4. ZYRTEC [Concomitant]
     Indication: SEASONAL ALLERGY
  5. AZOR [Concomitant]
     Indication: HYPERTENSION

REACTIONS (2)
  - MYALGIA [None]
  - SENSORY DISTURBANCE [None]
